FAERS Safety Report 4897757-2 (Version None)
Quarter: 2006Q1

REPORT INFORMATION
  Report Type: 
  Country: None (occurrence: None)
  Receive Date: 20060130
  Receipt Date: 20060130
  Transmission Date: 20060701
  Serious: Yes (Hospitalization)
  Sender: FDA-Public Use
  Company Number: None

PATIENT
  Sex: Male
  Weight: 93 kg

DRUGS (1)
  1. LEVAQUIN [Suspect]
     Indication: PNEUMONIA
     Dosage: 750 MG 1 TIME DOSE IV
     Route: 042
     Dates: start: 20060126, end: 20060126

REACTIONS (3)
  - DYSPNOEA [None]
  - ERYTHEMA [None]
  - PRURITUS GENERALISED [None]
